FAERS Safety Report 4281634-4 (Version None)
Quarter: 2004Q1

REPORT INFORMATION
  Report Type: 
  Country: None (occurrence: None)
  Receive Date: 20040128
  Receipt Date: 20040120
  Transmission Date: 20041129
  Serious: Yes (Other)
  Sender: FDA-Public Use
  Company Number: 200313853GDS

PATIENT
  Age: 48 Year
  Sex: Female

DRUGS (4)
  1. ASPIRIN [Suspect]
     Indication: ANTIPHOSPHOLIPID SYNDROME
  2. CYCLOSPORINE [Suspect]
     Indication: ANTIPHOSPHOLIPID SYNDROME
  3. TICLOPIDINE HCL [Suspect]
     Indication: ANTIPHOSPHOLIPID SYNDROME
  4. PREDNISOLONE [Suspect]

REACTIONS (7)
  - ASCITES [None]
  - GASTROINTESTINAL NECROSIS [None]
  - PERITONEAL ADHESIONS [None]
  - PERITONITIS [None]
  - PLATELET COUNT ABNORMAL [None]
  - THROMBOSIS [None]
  - WHITE BLOOD CELL COUNT INCREASED [None]
